FAERS Safety Report 25816080 (Version 1)
Quarter: 2025Q3

REPORT INFORMATION
  Report Type: Spontaneous
  Country: US (occurrence: US)
  Receive Date: 20250918
  Receipt Date: 20250918
  Transmission Date: 20251021
  Serious: No
  Sender: ELI LILLY AND COMPANY
  Company Number: US-ELI_LILLY_AND_COMPANY-US202509012790

PATIENT

DRUGS (3)
  1. EMGALITY [Suspect]
     Active Substance: GALCANEZUMAB-GNLM
     Indication: Product used for unknown indication
     Route: 065
  2. VYEPTI [Concomitant]
     Active Substance: EPTINEZUMAB-JJMR
     Indication: Product used for unknown indication
     Route: 065
     Dates: start: 202412
  3. VYEPTI [Concomitant]
     Active Substance: EPTINEZUMAB-JJMR
     Route: 065
     Dates: start: 202502

REACTIONS (1)
  - Migraine [Unknown]
